FAERS Safety Report 4997454-9 (Version None)
Quarter: 2006Q2

REPORT INFORMATION
  Report Type: 
  Country: None (occurrence: None)
  Receive Date: 20060509
  Receipt Date: 20060119
  Transmission Date: 20061013
  Serious: Yes (Hospitalization, Disabling)
  Sender: FDA-Public Use
  Company Number: US-MERCK-0601USA02584

PATIENT
  Age: 52 Year
  Sex: Female
  Weight: 113 kg

DRUGS (18)
  1. AMITRIPTYLIN [Concomitant]
     Indication: DEPRESSION
     Route: 065
     Dates: start: 20040101, end: 20050401
  2. ATENOLOL [Concomitant]
     Indication: HYPERTENSION
     Route: 065
     Dates: start: 19980901, end: 20050401
  3. AVAPRO [Concomitant]
     Indication: HYPERTENSION
     Route: 065
     Dates: start: 20010101, end: 20050201
  4. CELEXA [Concomitant]
     Indication: DEPRESSION
     Route: 065
     Dates: start: 20020601, end: 20030101
  5. EFFEXOR [Concomitant]
     Indication: DEPRESSION
     Route: 065
     Dates: start: 19980101, end: 20030101
  6. HYDROXYZINE HYDROCHLORIDE [Concomitant]
     Indication: ANXIETY
     Route: 065
     Dates: start: 20000301, end: 20021101
  7. HYDROCHLOROTHIAZIDE AND TRIAMTERENE [Concomitant]
     Indication: HYPERTENSION
     Route: 065
     Dates: start: 19980801, end: 20050201
  8. TENORMIN [Concomitant]
     Indication: HYPERTENSION
     Route: 065
     Dates: start: 19980901
  9. MAXZIDE [Concomitant]
     Indication: HYPERTENSION
     Route: 065
     Dates: start: 19980801
  10. SYNTHROID [Concomitant]
     Indication: THYROID DISORDER
     Route: 065
  11. PREMARIN [Concomitant]
     Route: 065
     Dates: start: 20000401, end: 20040101
  12. ALLEGRA [Concomitant]
     Indication: HYPERSENSITIVITY
     Route: 065
  13. METHYLPHENIDATE [Concomitant]
     Route: 065
  14. TRIAMTERENE [Concomitant]
     Route: 065
  15. VIOXX [Suspect]
     Indication: FIBROMYALGIA
     Route: 048
     Dates: start: 20020919, end: 20031201
  16. VIOXX [Suspect]
     Route: 048
     Dates: start: 20021201, end: 20040128
  17. CELEBREX [Concomitant]
     Route: 065
     Dates: start: 20000301, end: 20050101
  18. CELEBREX [Concomitant]
     Route: 065

REACTIONS (16)
  - ARTHRALGIA [None]
  - BLOOD CHOLESTEROL INCREASED [None]
  - CHEST PAIN [None]
  - DEEP VEIN THROMBOSIS [None]
  - DIZZINESS [None]
  - DYSPEPSIA [None]
  - DYSPNOEA [None]
  - GASTROOESOPHAGEAL REFLUX DISEASE [None]
  - OXYGEN SATURATION DECREASED [None]
  - PLANTAR FASCIITIS [None]
  - PULMONARY EMBOLISM [None]
  - RHEUMATOID ARTHRITIS [None]
  - ROTATOR CUFF SYNDROME [None]
  - SLEEP APNOEA SYNDROME [None]
  - SYNCOPE [None]
  - TENDONITIS [None]
